FAERS Safety Report 5148022-X (Version None)
Quarter: 2006Q4

REPORT INFORMATION
  Report Type: 
  Country: None (occurrence: None)
  Receive Date: 20061110
  Receipt Date: 20051102
  Transmission Date: 20070319
  Serious: Yes (Other)
  Sender: FDA-Public Use
  Company Number: JP-JPN-A20052648

PATIENT
  Age: 0 Day
  Sex: Female
  Weight: 0.2 kg

DRUGS (7)
  1. COMBIVIR [Suspect]
     Indication: HIV INFECTION
  2. RETROVIR [Suspect]
     Indication: ANTIVIRAL PROPHYLAXIS
     Dates: start: 20021217, end: 20021218
  3. VIRACEPT [Suspect]
     Indication: HIV INFECTION
  4. STEROID [Suspect]
     Indication: PRENATAL CARE
  5. RETROVIR [Suspect]
     Indication: HIV INFECTION
     Dosage: 600MG PER DAY
     Dates: start: 20020823, end: 20021114
  6. ZIDOVUDINE [Concomitant]
     Indication: ANTIVIRAL PROPHYLAXIS
     Route: 048
  7. ZERIT [Concomitant]
     Dosage: 60MG PER DAY
     Dates: start: 20020823, end: 20021114

REACTIONS (7)
  - ANAEMIA [None]
  - ANAEMIA NEONATAL [None]
  - CAESAREAN SECTION [None]
  - CHEST X-RAY ABNORMAL [None]
  - DRUG EXPOSURE DURING PREGNANCY [None]
  - NEONATAL TACHYPNOEA [None]
  - TACHYPNOEA [None]
